FAERS Safety Report 11144615 (Version 2)
Quarter: 2015Q3

REPORT INFORMATION
  Report Type: Spontaneous
  Country: JP (occurrence: JP)
  Receive Date: 20150528
  Receipt Date: 20150730
  Transmission Date: 20151125
  Serious: Yes (Other)
  Sender: FDA-Public Use
  Company Number: JP-PFIZER INC-2015074548

PATIENT
  Age: 72 Year
  Sex: Female

DRUGS (1)
  1. REVATIO [Suspect]
     Active Substance: SILDENAFIL CITRATE
     Indication: PULMONARY ARTERIAL HYPERTENSION
     Dosage: 60 MG, DAILY
     Route: 048
     Dates: start: 20141001, end: 20150407

REACTIONS (3)
  - Photophobia [Not Recovered/Not Resolved]
  - Visual acuity reduced [Unknown]
  - Cataract [Unknown]
